FAERS Safety Report 24595882 (Version 2)
Quarter: 2024Q4

REPORT INFORMATION
  Report Type: Report from Study
  Country: NL (occurrence: NL)
  Receive Date: 20241109
  Receipt Date: 20241113
  Transmission Date: 20250115
  Serious: Yes (Death, Other)
  Sender: ABBVIE
  Company Number: NL-ABBVIE-5997113

PATIENT
  Age: 75 Year
  Sex: Female

DRUGS (4)
  1. CARBIDOPA\LEVODOPA [Suspect]
     Active Substance: CARBIDOPA\LEVODOPA
     Indication: Parkinson^s disease
     Dosage: MD 5.0ML, CD 2.5ML/H, ED 0.50ML, REMAINS AT 16 HOURS
     Route: 050
     Dates: start: 20231212, end: 20231218
  2. CARBIDOPA\LEVODOPA [Suspect]
     Active Substance: CARBIDOPA\LEVODOPA
     Dosage: MD 5.0ML, CD 2.5ML/H, ED 0.50ML, REMAINS AT 16 HOURS
     Route: 050
     Dates: start: 20231218, end: 20241104
  3. CARBIDOPA\LEVODOPA [Suspect]
     Active Substance: CARBIDOPA\LEVODOPA
     Route: 050
     Dates: start: 20021025
  4. POLYETHYLENE GLYCOLS [Concomitant]
     Active Substance: POLYETHYLENE GLYCOLS
     Indication: Gastrointestinal motility disorder
     Dosage: FREQUENCY TEXT: IF NECESSARY

REACTIONS (5)
  - Hypophagia [Fatal]
  - Fluid intake reduced [Fatal]
  - Parkinson^s disease [Fatal]
  - Death [Fatal]
  - Multiple sclerosis [Fatal]

NARRATIVE: CASE EVENT DATE: 20240101
